FAERS Safety Report 7018719-5 (Version None)
Quarter: 2010Q3

REPORT INFORMATION
  Report Type: 
  Country: None (occurrence: None)
  Receive Date: 20100928
  Receipt Date: 20100921
  Transmission Date: 20110219
  Serious: Yes (Other)
  Sender: FDA-Public Use
  Company Number: US-AMGEN-KDC431641

PATIENT
  Age: 47 Year
  Sex: Male
  Weight: 130 kg

DRUGS (9)
  1. PANITUMUMAB [Suspect]
     Indication: OESOPHAGEAL CARCINOMA
     Dates: start: 20100712
  2. TAXOTERE [Suspect]
     Dates: start: 20100712
  3. CISPLATIN [Suspect]
     Dates: start: 20100712
  4. CELEXA [Concomitant]
  5. DEXAMETHASONE [Concomitant]
  6. LORAZEPAM [Concomitant]
  7. MAGNESIUM OXIDE [Concomitant]
  8. MINOCYCLINE HCL [Concomitant]
  9. ROXICET [Concomitant]

REACTIONS (1)
  - HYPOPHOSPHATAEMIA [None]
